FAERS Safety Report 7757255-5 (Version None)
Quarter: 2011Q3

REPORT INFORMATION
  Report Type: 
  Country: None (occurrence: None)
  Receive Date: 20110916
  Receipt Date: 20110915
  Transmission Date: 20111222
  Serious: Yes (Other)
  Sender: FDA-Public Use
  Company Number: CN-PFIZER INC-2011218925

PATIENT

DRUGS (1)
  1. LIPITOR [Suspect]

REACTIONS (2)
  - LIVER INJURY [None]
  - HEPATIC ENZYME INCREASED [None]
